FAERS Safety Report 4408242-6 (Version None)
Quarter: 2004Q3

REPORT INFORMATION
  Report Type: 
  Country: None (occurrence: None)
  Receive Date: 20040726
  Receipt Date: 20040726
  Transmission Date: 20050211
  Serious: No
  Sender: FDA-Public Use
  Company Number: None

PATIENT
  Sex: Male
  Weight: 97 kg

DRUGS (8)
  1. AMIODARONE HCL [Suspect]
     Indication: VENTRICULAR TACHYCARDIA
     Dosage: 400 MG  TWICE DAIL   ORAL
     Route: 048
     Dates: start: 20020903, end: 20040316
  2. FELODIPINE [Concomitant]
  3. FUROSEMIDE [Concomitant]
  4. GLYBURIDE AND METFORMIN HCL [Concomitant]
  5. SYNTHROID [Concomitant]
  6. LISINOPRIL [Concomitant]
  7. METOPROLOL TARTRATE [Concomitant]
  8. POTASSIUM CHLORIDE [Concomitant]

REACTIONS (3)
  - HYPOTHYROIDISM [None]
  - LUNG INJURY [None]
  - RESTRICTIVE PULMONARY DISEASE [None]
